FAERS Safety Report 6452770-9 (Version None)
Quarter: 2009Q4

REPORT INFORMATION
  Report Type: 
  Country: None (occurrence: None)
  Receive Date: 20091124
  Receipt Date: 20091117
  Transmission Date: 20100525
  Serious: Yes (Other)
  Sender: FDA-Public Use
  Company Number: US-PFIZER INC-2009298590

PATIENT
  Sex: Female

DRUGS (2)
  1. PROVERA [Suspect]
     Indication: OVULATION DISORDER
     Dosage: 10 MG, 6 DOSES/DAY
  2. YAZ [Suspect]
     Dosage: UNK
     Dates: start: 20071115

REACTIONS (1)
  - CEREBROVASCULAR ACCIDENT [None]
